FAERS Safety Report 4540044-2 (Version None)
Quarter: 2004Q4

REPORT INFORMATION
  Report Type: 
  Country: None (occurrence: None)
  Receive Date: 20041223
  Receipt Date: 20041124
  Transmission Date: 20050328
  Serious: Yes (Death, Hospitalization)
  Sender: FDA-Public Use
  Company Number: 2004239590US

PATIENT
  Age: 64 Year
  Sex: Male

DRUGS (17)
  1. IRINOTECAN HCL [Suspect]
     Indication: COLORECTAL CANCER METASTATIC
     Dosage: 600 MG (CYCLIC), INTRAVENOUS
     Route: 042
     Dates: start: 20040927, end: 20040927
  2. OXYCODONE (OXYCODONE) [Concomitant]
  3. FLUTICASONE PROPIONATE [Concomitant]
  4. SALMETEROL XINAFOATE (SALMETEROL XINAFOATE) [Concomitant]
  5. FENTANYL [Concomitant]
  6. FUROSEMIDE [Suspect]
  7. POTASSIUM (POTASSIUM) [Concomitant]
  8. IRON (IRON) [Concomitant]
  9. MULTIVITAMIS (ASCORBIC ACID, ERGOCALCIFEROL, FOLIC ACID, NICOTINAMIDE, [Concomitant]
  10. SPIRONOLACTONE [Concomitant]
  11. PSYLLIUM (PSYLLIUM) [Concomitant]
  12. METOPROLOL TARTRATE [Concomitant]
  13. TRAZODONE HCL [Concomitant]
  14. ALPRAZOLAM [Concomitant]
  15. PAROXETINE HCL [Concomitant]
  16. LOMOTIL [Concomitant]
  17. PROCHLORPERAZINE EDISYLATE [Concomitant]

REACTIONS (48)
  - ABASIA [None]
  - ABDOMINAL DISTENSION [None]
  - ABDOMINAL PAIN LOWER [None]
  - ABDOMINAL PAIN UPPER [None]
  - ANAEMIA [None]
  - ANOREXIA [None]
  - ASCITES [None]
  - ASTHENIA [None]
  - ATAXIA [None]
  - BLOOD PRESSURE DECREASED [None]
  - BREATH SOUNDS DECREASED [None]
  - COAGULOPATHY [None]
  - CONFUSIONAL STATE [None]
  - DECUBITUS ULCER [None]
  - DELIRIUM [None]
  - DIARRHOEA [None]
  - ELECTROCARDIOGRAM QT CORRECTED INTERVAL PROLONGED [None]
  - ELECTROCARDIOGRAM T WAVE INVERSION [None]
  - FAECAL INCONTINENCE [None]
  - FAECAL OCCULT BLOOD POSITIVE [None]
  - FEBRILE NEUTROPENIA [None]
  - FLUID IMBALANCE [None]
  - FOOT FRACTURE [None]
  - HEART RATE INCREASED [None]
  - HEPATIC FAILURE [None]
  - HICCUPS [None]
  - HYPERCALCAEMIA [None]
  - HYPERGLYCAEMIA [None]
  - HYPOALBUMINAEMIA [None]
  - HYPOVOLAEMIA [None]
  - INFECTION [None]
  - LOBAR PNEUMONIA [None]
  - MALAISE [None]
  - MALNUTRITION [None]
  - MUSCLE ATROPHY [None]
  - NERVOUS SYSTEM DISORDER [None]
  - OEDEMA PERIPHERAL [None]
  - ORAL CANDIDIASIS [None]
  - PALLOR [None]
  - PERFORMANCE STATUS DECREASED [None]
  - PNEUMONIA KLEBSIELLA [None]
  - PROTEIN TOTAL DECREASED [None]
  - RESPIRATORY RATE INCREASED [None]
  - THROMBOCYTOPENIA [None]
  - TRAUMATIC FRACTURE [None]
  - URINARY TRACT INFECTION [None]
  - URINE OUTPUT DECREASED [None]
  - WHITE BLOOD CELL COUNT INCREASED [None]
